FAERS Safety Report 22350984 (Version 1)
Quarter: 2023Q2

REPORT INFORMATION
  Report Type: Spontaneous
  Country: RE (occurrence: FR)
  Receive Date: 20230522
  Receipt Date: 20230522
  Transmission Date: 20230721
  Serious: Yes (Other)
  Sender: FDA-Public Use
  Company Number: 2023A115988

PATIENT
  Sex: Male

DRUGS (1)
  1. DAPAGLIFLOZIN [Suspect]
     Active Substance: DAPAGLIFLOZIN
     Indication: Renal failure
     Route: 048
     Dates: end: 202304

REACTIONS (4)
  - Cardiac failure [Unknown]
  - Dyspnoea [Recovered/Resolved]
  - Glomerular filtration rate decreased [Unknown]
  - Intentional product misuse [Unknown]
